FAERS Safety Report 20216529 (Version 1)
Quarter: 2021Q4

REPORT INFORMATION
  Report Type: Spontaneous
  Country: MY (occurrence: MY)
  Receive Date: 20211222
  Receipt Date: 20211222
  Transmission Date: 20220303
  Serious: Yes (Other)
  Sender: FDA-Public Use
  Company Number: ALC2021MY006747

PATIENT
  Age: 36 Year
  Sex: Male

DRUGS (1)
  1. MYDRIACYL [Suspect]
     Active Substance: TROPICAMIDE
     Indication: Ophthalmological examination
     Dosage: 1 GTT, QD
     Route: 047

REACTIONS (1)
  - Syncope [Recovered/Resolved]
